FAERS Safety Report 23460607 (Version 2)
Quarter: 2024Q4

REPORT INFORMATION
  Report Type: Report from Study
  Country: JP (occurrence: JP)
  Receive Date: 20240131
  Receipt Date: 20241028
  Transmission Date: 20250115
  Serious: Yes (Other)
  Sender: EXELIXIS
  Company Number: JP-TAKEDA-2023TJP014992

PATIENT
  Age: 62 Year
  Sex: Male
  Weight: 54.5 kg

DRUGS (6)
  1. CABOMETYX [Suspect]
     Active Substance: CABOZANTINIB S-MALATE
     Indication: Hepatocellular carcinoma
     Dosage: 40 MILLIGRAM, QD
     Route: 048
     Dates: start: 20231018, end: 20231107
  2. ALOGLIPTIN BENZOATE\PIOGLITAZONE HYDROCHLORIDE [Concomitant]
     Active Substance: ALOGLIPTIN BENZOATE\PIOGLITAZONE HYDROCHLORIDE
     Indication: Hepatocellular carcinoma
     Dosage: UNK
     Route: 065
     Dates: start: 20231018
  3. ALOGLIPTIN BENZOATE\PIOGLITAZONE HYDROCHLORIDE [Concomitant]
     Active Substance: ALOGLIPTIN BENZOATE\PIOGLITAZONE HYDROCHLORIDE
     Dosage: UNK
     Route: 065
     Dates: start: 20231018
  4. CANAGLIFLOZIN [Concomitant]
     Active Substance: CANAGLIFLOZIN
     Indication: Hepatocellular carcinoma
     Dosage: UNK
     Route: 065
     Dates: start: 20231018
  5. MITIGLINIDE CALCIUM HYDRATE\VOGLIBOSE [Concomitant]
     Active Substance: MITIGLINIDE CALCIUM HYDRATE\VOGLIBOSE
     Indication: Hepatocellular carcinoma
     Dosage: UNK
     Route: 065
     Dates: start: 20231018
  6. AMLODIPINE [Concomitant]
     Active Substance: AMLODIPINE BESYLATE
     Indication: Hepatocellular carcinoma
     Dosage: UNK
     Route: 065
     Dates: start: 20231018

REACTIONS (1)
  - Erythema multiforme [Recovering/Resolving]

NARRATIVE: CASE EVENT DATE: 20231103
